FAERS Safety Report 5857678-5 (Version None)
Quarter: 2008Q3

REPORT INFORMATION
  Report Type: 
  Country: None (occurrence: None)
  Receive Date: 20080818
  Receipt Date: 20080612
  Transmission Date: 20090109
  Serious: No
  Sender: FDA-Public Use
  Company Number: WAES 0806USA02679

PATIENT
  Sex: Female

DRUGS (1)
  1. JANUVIA [Suspect]
     Dosage: 100 MG/DAILY/PO
     Route: 048
     Dates: start: 20080601

REACTIONS (2)
  - COUGH [None]
  - NASAL CONGESTION [None]
